FAERS Safety Report 18278193 (Version 29)
Quarter: 2025Q3

REPORT INFORMATION
  Report Type: Report from Study
  Country: US (occurrence: US)
  Receive Date: 20200917
  Receipt Date: 20250808
  Transmission Date: 20251020
  Serious: Yes (Other)
  Sender: TAKEDA
  Company Number: US-SHIRE-US202030225

PATIENT
  Sex: Female
  Weight: 104 kg

DRUGS (19)
  1. HUMAN IMMUNOGLOBULIN G [Suspect]
     Active Substance: HUMAN IMMUNOGLOBULIN G
     Indication: Immunodeficiency common variable
     Dosage: 10 GRAM, Q2WEEKS
  2. HUMAN IMMUNOGLOBULIN G [Suspect]
     Active Substance: HUMAN IMMUNOGLOBULIN G
     Dosage: 10 GRAM, Q2WEEKS
     Dates: start: 20170116
  3. OTEZLA [Suspect]
     Active Substance: APREMILAST
     Indication: Product used for unknown indication
  4. DIPHENHYDRAMINE [Concomitant]
     Active Substance: DIPHENHYDRAMINE
  5. OXYCONTIN [Concomitant]
     Active Substance: OXYCODONE HYDROCHLORIDE
  6. EPINEPHRINE [Concomitant]
     Active Substance: EPINEPHRINE
  7. OXYCODONE AND ACETAMINOPHEN [Concomitant]
     Active Substance: ACETAMINOPHEN\OXYCODONE HYDROCHLORIDE
  8. LIDOCAINE\PRILOCAINE [Concomitant]
     Active Substance: LIDOCAINE\PRILOCAINE
  9. ASPIRIN [Concomitant]
     Active Substance: ASPIRIN
  10. IBUPROFEN [Concomitant]
     Active Substance: IBUPROFEN
  11. FISH OIL [Concomitant]
     Active Substance: FISH OIL
  12. MORPHINE SULFATE [Concomitant]
     Active Substance: MORPHINE SULFATE
  13. ZITHROMAX [Concomitant]
     Active Substance: AZITHROMYCIN DIHYDRATE
  14. CLINDAMYCIN [Concomitant]
     Active Substance: CLINDAMYCIN
  15. PENICILLIN [Concomitant]
     Active Substance: PENICILLIN
  16. MORPHINE [Concomitant]
     Active Substance: MORPHINE
  17. LIDOCAINE [Concomitant]
     Active Substance: LIDOCAINE
  18. DIPHENHYDRAMINE HYDROCHLORIDE [Concomitant]
     Active Substance: DIPHENHYDRAMINE HYDROCHLORIDE
  19. ACETAMINOPHEN [Concomitant]
     Active Substance: ACETAMINOPHEN

REACTIONS (24)
  - Neuropathy peripheral [Unknown]
  - Pneumonia [Unknown]
  - Skin laceration [Unknown]
  - Nasopharyngitis [Unknown]
  - Musculoskeletal discomfort [Unknown]
  - Tendon disorder [Unknown]
  - Localised infection [Unknown]
  - Bronchitis [Unknown]
  - Drug ineffective [Unknown]
  - Muscle swelling [Unknown]
  - Haemorrhage [Unknown]
  - Foot fracture [Unknown]
  - COVID-19 [Unknown]
  - Fall [Unknown]
  - Ankle fracture [Unknown]
  - Sinusitis [Recovering/Resolving]
  - Vertigo [Unknown]
  - Pain [Unknown]
  - Influenza like illness [Unknown]
  - Pain in extremity [Unknown]
  - Arthralgia [Unknown]
  - Diarrhoea [Unknown]
  - Pruritus [Unknown]
  - Fatigue [Unknown]
